FAERS Safety Report 4700181-6 (Version None)
Quarter: 2005Q2

REPORT INFORMATION
  Report Type: 
  Country: None (occurrence: None)
  Receive Date: 20050627
  Receipt Date: 20050613
  Transmission Date: 20051028
  Serious: Yes (Other)
  Sender: FDA-Public Use
  Company Number: US-GLAXOSMITHKLINE-A0562757A

PATIENT
  Age: 27 Year
  Sex: Male

DRUGS (1)
  1. TUMS [Suspect]
     Route: 048

REACTIONS (3)
  - DEPENDENCE [None]
  - GASTRIC DISORDER [None]
  - OVERDOSE [None]
